FAERS Safety Report 6555105-6 (Version None)
Quarter: 2010Q1

REPORT INFORMATION
  Report Type: 
  Country: None (occurrence: None)
  Receive Date: 20100128
  Receipt Date: 20100120
  Transmission Date: 20100710
  Serious: No
  Sender: FDA-Public Use
  Company Number: US-B.I. PHARMACEUTICALS,INC./RIDGEFIELD-2010-BP-00803BP

PATIENT
  Sex: Male

DRUGS (7)
  1. ZANTAC 150 [Suspect]
     Indication: DYSPEPSIA
     Dosage: 300 MG
     Route: 048
     Dates: start: 20090701
  2. DIGOXIN [Concomitant]
     Indication: VASCULAR GRAFT
  3. HYDROCHLOROTHIAZIDE [Concomitant]
     Indication: VASCULAR GRAFT
  4. AMLODIPINE [Concomitant]
     Indication: VASCULAR GRAFT
  5. ASPIRIN [Concomitant]
     Indication: VASCULAR GRAFT
  6. LIPITOR [Concomitant]
     Indication: BLOOD CHOLESTEROL INCREASED
  7. COUMADIN [Concomitant]
     Indication: VASCULAR GRAFT

REACTIONS (1)
  - WEIGHT DECREASED [None]
